FAERS Safety Report 6309787-4 (Version None)
Quarter: 2009Q3

REPORT INFORMATION
  Report Type: 
  Country: None (occurrence: None)
  Receive Date: 20090814
  Receipt Date: 20090803
  Transmission Date: 20100115
  Serious: Yes (Other)
  Sender: FDA-Public Use
  Company Number: GB-ELI_LILLY_AND_COMPANY-GB200908000190

PATIENT
  Age: 49 Year
  Weight: 56 kg

DRUGS (5)
  1. FORTEO [Suspect]
     Indication: OSTEOPOROSIS
     Dosage: 20 UG, DAILY (1/D)
     Route: 058
     Dates: start: 20080710, end: 20090707
  2. ADCAL D3 [Concomitant]
     Dosage: 1 D/F, UNKNOWN
     Route: 048
  3. CIPROFLOXACIN [Concomitant]
     Dosage: 500 MG, UNKNOWN
     Route: 048
     Dates: start: 20090610, end: 20090615
  4. OMEPRAZOLE [Concomitant]
     Dosage: 20 MG, UNKNOWN
     Route: 048
     Dates: start: 20090502
  5. PARACETAMOL [Concomitant]
     Dosage: 500 MG, UNKNOWN
     Route: 048

REACTIONS (2)
  - NEPHROLITHIASIS [None]
  - RENAL DISORDER [None]
